FAERS Safety Report 20836492 (Version 1)
Quarter: 2022Q2

REPORT INFORMATION
  Report Type: Report from Study
  Country: DE (occurrence: DE)
  Receive Date: 20220517
  Receipt Date: 20220517
  Transmission Date: 20220720
  Serious: Yes (Other)
  Sender: FDA-Public Use
  Company Number: DE-Accord-262234

PATIENT
  Sex: Male

DRUGS (1)
  1. VORICONAZOLE [Suspect]
     Active Substance: VORICONAZOLE
     Indication: Product used for unknown indication
     Dosage: (D1):6 MG/KG/D Q12., DAY 2 WAS 4MG/KG/D Q12., DOSE MODIFICATION:5MG/KG/D Q12
     Route: 065

REACTIONS (1)
  - Gamma-glutamyltransferase increased [Unknown]
